FAERS Safety Report 9841910 (Version 1)
Quarter: 2013Q4

REPORT INFORMATION
  Report Type: Spontaneous
  Country: US (occurrence: None)
  Receive Date: 20131211
  Receipt Date: 20131211
  Transmission Date: 20140711
  Serious: Yes (Other)
  Sender: FDA-Public Use
  Company Number: TKT01200700018

PATIENT
  Age: 5 Year
  Sex: Male
  Weight: 28.5 kg

DRUGS (7)
  1. IDURSULFASE (IDURSULFASE) (0.5 MILLIGRAM(S)/KILOGRAM, CONCENTRATE FOR SOLUTION FOR INFUSION) (IDURSULFASE) [Suspect]
     Indication: MUCOPOLYSACCHARIDOSIS II
     Route: 041
     Dates: start: 20060910
  2. KEPPRA (LEVETIRACETAM) [Concomitant]
  3. ZYRTEC (CETIRIZINE HYDROCHLORIDE) [Concomitant]
  4. FLOVENT (FLUTICASONE PROPIONATE) [Concomitant]
  5. ATROVENT (IPRATROPIUM BROMIDE) [Concomitant]
  6. PULMICORT (BUDESONIDE) [Concomitant]
  7. FOLATE (FOLATE SODIUM) [Concomitant]

REACTIONS (4)
  - Urticaria [None]
  - Erythema [None]
  - Oedema [None]
  - Infusion related reaction [None]
